FAERS Safety Report 13062770 (Version 2)
Quarter: 2017Q1

REPORT INFORMATION
  Report Type: Report from Study
  Country: MX (occurrence: MX)
  Receive Date: 20161226
  Receipt Date: 20170124
  Transmission Date: 20170428
  Serious: Yes (Other)
  Sender: FDA-Public Use
  Company Number: PHHY2016MX176323

PATIENT
  Age: 60 Year
  Sex: Female
  Weight: 68 kg

DRUGS (3)
  1. MIFLONIDE [Suspect]
     Active Substance: BUDESONIDE
     Indication: PNEUMONITIS
     Dosage: 1 DF (200 UG), Q12H
     Route: 065
     Dates: start: 201603
  2. ULTIBRO BREEZHALER [Suspect]
     Active Substance: GLYCOPYRRONIUM\INDACATEROL
     Indication: DYSPNOEA
     Dosage: 2 DF (110/50 UG), QD
     Route: 065
     Dates: start: 201603
  3. MIFLONIDE [Suspect]
     Active Substance: BUDESONIDE
     Indication: PAIN

REACTIONS (3)
  - Product use issue [Not Recovered/Not Resolved]
  - Lung neoplasm malignant [Recovering/Resolving]
  - Incorrect dose administered [Not Recovered/Not Resolved]

NARRATIVE: CASE EVENT DATE: 201603
